FAERS Safety Report 5097770-9 (Version None)
Quarter: 2006Q3

REPORT INFORMATION
  Report Type: 
  Country: None (occurrence: None)
  Receive Date: 20060905
  Receipt Date: 20060823
  Transmission Date: 20061208
  Serious: Yes (Hospitalization)
  Sender: FDA-Public Use
  Company Number: 06H-167-0309777-00

PATIENT
  Age: 17 Year
  Sex: Female
  Weight: 33 kg

DRUGS (17)
  1. TAZICEF FOR INJECTION (TAZICEF INJECTION) (CEFTAZIDIME PENTAHYDATE) (C [Suspect]
     Indication: DRUG USE FOR UNKNOWN INDICATION
     Dosage: 2 MILLIEQUIVALENTS, 3 IN 1 D, INTRAVENOUS
     Route: 042
  2. AMIKACIN SULFATE [Suspect]
     Indication: DRUG USE FOR UNKNOWN INDICATION
  3. AMBISOME [Suspect]
     Indication: DRUG USE FOR UNKNOWN INDICATION
  4. TACROLIMUS (TACROLIMUS) [Suspect]
     Indication: DRUG USE FOR UNKNOWN INDICATION
     Dosage: 2 MG, 2 IN 1 D
  5. FERROUS SULFATE TAB [Concomitant]
  6. MAGNESIUM GLYCEROPHOSPHATE (MAGNESIUM GLYCEROPHOSPHATE) [Concomitant]
  7. MICROGYNON (EUGYNON) [Concomitant]
  8. MIXTARD (INITARD) [Concomitant]
  9. MULTIVITAMIN [Concomitant]
  10. MYCOPHENOLATE MOFETIL [Concomitant]
  11. ACETAMINOPHEN [Concomitant]
  12. PRAVASTATIN [Concomitant]
  13. SALBUTAMOL  (SALBUTAMOL) [Concomitant]
  14. VALACYCLOVIR [Concomitant]
  15. PHYTONADIONE [Concomitant]
  16. VORICONAZOLE (VORICONAZOLE) [Concomitant]
  17. ZITHROMAX [Concomitant]

REACTIONS (1)
  - RENAL FAILURE ACUTE [None]
